FAERS Safety Report 19743280 (Version 3)
Quarter: 2021Q4

REPORT INFORMATION
  Report Type: Spontaneous
  Country: US (occurrence: US)
  Receive Date: 20210825
  Receipt Date: 20211209
  Transmission Date: 20220303
  Serious: No
  Sender: FDA-Public Use
  Company Number: US-SA-SAC20210820000467

PATIENT
  Age: 68 Year
  Sex: Female

DRUGS (1)
  1. AUBAGIO [Suspect]
     Active Substance: TERIFLUNOMIDE
     Indication: Multiple sclerosis
     Dosage: 14 MG, QD
     Route: 048
     Dates: start: 20200113

REACTIONS (3)
  - Head injury [Recovered/Resolved]
  - Fall [Not Recovered/Not Resolved]
  - Drug ineffective [Unknown]

NARRATIVE: CASE EVENT DATE: 20210719
